FAERS Safety Report 9408733 (Version 2)
Quarter: 2013Q3

REPORT INFORMATION
  Report Type: Spontaneous
  Country: US (occurrence: US)
  Receive Date: 20130718
  Receipt Date: 20130916
  Transmission Date: 20140515
  Serious: Yes (Other)
  Sender: FDA-Public Use
  Company Number: US-TMC-CABO-13002970

PATIENT
  Age: 73 Year
  Sex: Female

DRUGS (26)
  1. COMETRIQ [Suspect]
     Indication: THYROID CANCER
     Dosage: 40 MG, QD
     Route: 048
     Dates: start: 20130308, end: 20130708
  2. ALLOPURINOL [Concomitant]
  3. AMLODIPINE [Concomitant]
  4. ASPIRIN [Concomitant]
  5. ATENOLOL [Concomitant]
  6. CALCITRIOL [Concomitant]
  7. CALCIUM [Concomitant]
  8. CRANBERRY EXTRACT [Concomitant]
  9. DIOVAN [Concomitant]
  10. DOXYLAMINE SUCCINATE [Concomitant]
  11. HUMALOG [Concomitant]
  12. HYDROCODONE [Concomitant]
  13. IMODIUM [Concomitant]
  14. LASIX [Concomitant]
  15. LISINOPRIL [Concomitant]
  16. LOMOTIL [Concomitant]
  17. LYRICA [Concomitant]
  18. METFORMIN ER [Concomitant]
  19. FISH OIL [Concomitant]
  20. OPIUM TINCTURE [Concomitant]
  21. PAROXETINE [Concomitant]
  22. PEPCID [Concomitant]
  23. PRAVASTATIN [Concomitant]
  24. LEVOXYL [Concomitant]
  25. UREA [Concomitant]
  26. VITAMIN D [Concomitant]

REACTIONS (19)
  - Concussion [Unknown]
  - Upper limb fracture [Unknown]
  - Fall [Recovered/Resolved]
  - Muscle atrophy [Unknown]
  - Tooth disorder [Unknown]
  - Nodule [Unknown]
  - Somnolence [Unknown]
  - Dry mouth [Unknown]
  - Diarrhoea [Unknown]
  - Gingival bleeding [Unknown]
  - Palmar-plantar erythrodysaesthesia syndrome [Unknown]
  - Dysphonia [Unknown]
  - Decreased appetite [Unknown]
  - Nausea [Unknown]
  - Vomiting [Unknown]
  - Pain [Unknown]
  - Arthralgia [Unknown]
  - Asthenia [Unknown]
  - Weight decreased [Unknown]
